FAERS Safety Report 17852097 (Version 1)
Quarter: 2020Q2

REPORT INFORMATION
  Report Type: Spontaneous
  Country: US (occurrence: US)
  Receive Date: 20200602
  Receipt Date: 20200602
  Transmission Date: 20200714
  Serious: No
  Sender: FDA-Public Use
  Company Number: US-B.I. PHARMACEUTICALS,INC./RIDGEFIELD-2020-US-027603

PATIENT
  Sex: Male

DRUGS (1)
  1. CATAPRES [Suspect]
     Active Substance: CLONIDINE HYDROCHLORIDE
     Indication: AUTISM SPECTRUM DISORDER
     Dosage: 0.7MG DAILY
     Route: 065

REACTIONS (2)
  - Overdose [Not Recovered/Not Resolved]
  - Off label use [Unknown]
